FAERS Safety Report 21039738 (Version 1)
Quarter: 2022Q3

REPORT INFORMATION
  Report Type: Spontaneous
  Country: CA (occurrence: CA)
  Receive Date: 20220704
  Receipt Date: 20220704
  Transmission Date: 20221027
  Serious: Yes (Other)
  Sender: FDA-Public Use
  Company Number: CA-ABBVIE-22K-028-4455635-00

PATIENT

DRUGS (1)
  1. CREON [Suspect]
     Active Substance: PANCRELIPASE AMYLASE\PANCRELIPASE LIPASE\PANCRELIPASE PROTEASE
     Indication: Product used for unknown indication
     Dosage: 2 PILLS ABOUT 10 MINUTES BEFORE EACH MEAL OR 1 BEFORE SNACKS
     Route: 048

REACTIONS (4)
  - Recurrent cancer [Unknown]
  - Abdominal discomfort [Not Recovered/Not Resolved]
  - Unevaluable event [Unknown]
  - Diarrhoea [Not Recovered/Not Resolved]
